FAERS Safety Report 4384073-0 (Version None)
Quarter: 2004Q2

REPORT INFORMATION
  Report Type: 
  Country: None (occurrence: None)
  Receive Date: 20040621
  Receipt Date: 20040607
  Transmission Date: 20050107
  Serious: Yes (Other)
  Sender: FDA-Public Use
  Company Number: JP-2004-027036

PATIENT
  Age: 77 Year
  Sex: Male

DRUGS (4)
  1. PROSCOPE 150       (IOPROMIDE) [Suspect]
     Indication: ANGIOGRAM
     Dosage: 100 ML, 1 DOSE, INTRA-ARTERIAL
     Route: 013
     Dates: start: 20010323, end: 20010323
  2. ALPROSTADIL (ALPROSTADIL) [Suspect]
  3. EVIPROSTAT (SODIUM TAUROCHOLATE, EQUISETUM ARVENSE, POPULUS TREMULOIDE [Concomitant]
  4. INSULIN HUMAN (INSULIN HUMAN) [Concomitant]

REACTIONS (1)
  - ANAPHYLACTOID SHOCK [None]
